FAERS Safety Report 5780702-5 (Version None)
Quarter: 2008Q2

REPORT INFORMATION
  Report Type: 
  Country: None (occurrence: None)
  Receive Date: 20080620
  Receipt Date: 20080616
  Transmission Date: 20081010
  Serious: Yes (Hospitalization)
  Sender: FDA-Public Use
  Company Number: AU-PFIZER INC-2008046653

PATIENT
  Sex: Male

DRUGS (22)
  1. MARAVIROC [Suspect]
     Indication: HIV INFECTION
     Route: 048
  2. ATORVASTATIN [Concomitant]
  3. RANITIDINE HCL [Concomitant]
     Route: 048
  4. COSOPT [Concomitant]
     Dates: start: 20010101
  5. LATANOPROST [Concomitant]
     Route: 031
     Dates: start: 20050101
  6. POLY-TEARS [Concomitant]
  7. VALACYCLOVIR [Concomitant]
     Route: 048
  8. ASPIRIN [Concomitant]
  9. ALBUTEROL [Concomitant]
  10. FISH OIL [Concomitant]
     Route: 048
  11. ATAZANAVIR [Concomitant]
     Route: 048
  12. EFAVIRENZ [Concomitant]
     Route: 048
  13. COMBIVIR [Concomitant]
     Route: 048
  14. TENOFOVIR DISOPROXIL FUMARATE [Concomitant]
     Route: 048
  15. METOCLOPRAMIDE [Concomitant]
     Route: 048
  16. EFFEXOR [Concomitant]
  17. ACETAMINOPHEN [Concomitant]
  18. NEMDYN [Concomitant]
  19. ACETAMINOPHEN [Concomitant]
     Route: 048
     Dates: start: 19900101
  20. EFUDEX [Concomitant]
     Route: 061
  21. CELESTONE TAB [Concomitant]
     Route: 061
  22. OXAZEPAM [Concomitant]
     Route: 048
     Dates: start: 20071001

REACTIONS (2)
  - MALIGNANT TUMOUR EXCISION [None]
  - SKIN NEOPLASM EXCISION [None]
